FAERS Safety Report 23680850 (Version 1)
Quarter: 2024Q1

REPORT INFORMATION
  Report Type: Spontaneous
  Country: US (occurrence: US)
  Receive Date: 20240328
  Receipt Date: 20240328
  Transmission Date: 20240409
  Serious: Yes (Hospitalization, Other)
  Sender: FDA-Public Use
  Company Number: US-QILU PHARMACEUTICAL CO.LTD.-QLU-000092-2023

PATIENT
  Age: 79 Year
  Sex: Male
  Weight: 72.5 kg

DRUGS (6)
  1. CEFEPIME HYDROCHLORIDE [Suspect]
     Active Substance: CEFEPIME HYDROCHLORIDE
     Indication: Osteomyelitis
     Dosage: VIAL INFUSED OVER 4 HOURS (EXTENDED INFUSION) EVERY 12 HOURS (RENALLY DOSE-ADJUSTED)
     Route: 042
     Dates: start: 20230901, end: 20230905
  2. LEVAQUIN [Suspect]
     Active Substance: LEVOFLOXACIN
     Indication: Osteomyelitis
     Dosage: 500 MG DAILY
     Route: 048
     Dates: start: 20230830, end: 20230901
  3. ASPIRIN [Concomitant]
     Active Substance: ASPIRIN
     Indication: Coronary artery disease
     Route: 065
  4. NIVOLUMAB [Concomitant]
     Active Substance: NIVOLUMAB
     Route: 065
  5. NIVOLUMAB [Concomitant]
     Active Substance: NIVOLUMAB
  6. OBINUTUZUMAB [Concomitant]
     Active Substance: OBINUTUZUMAB
     Indication: B-cell lymphoma
     Route: 065

REACTIONS (2)
  - Metabolic encephalopathy [Recovering/Resolving]
  - Off label use [Recovered/Resolved]

NARRATIVE: CASE EVENT DATE: 20230901
